FAERS Safety Report 7738371-0 (Version None)
Quarter: 2011Q3

REPORT INFORMATION
  Report Type: 
  Country: None (occurrence: None)
  Receive Date: 20110908
  Receipt Date: 20110826
  Transmission Date: 20111222
  Serious: Yes (Other)
  Sender: FDA-Public Use
  Company Number: US-BAYER-2011-081596

PATIENT
  Age: 29 Year
  Sex: Female
  Weight: 68 kg

DRUGS (1)
  1. ASPIRIN [Suspect]
     Dosage: 2 DF, UNK
     Route: 048
     Dates: start: 20110826

REACTIONS (6)
  - EYE SWELLING [None]
  - EYE PRURITUS [None]
  - SWELLING FACE [None]
  - THROAT TIGHTNESS [None]
  - HYPERSENSITIVITY [None]
  - PHARYNGEAL OEDEMA [None]
